FAERS Safety Report 6671385-0 (Version None)
Quarter: 2010Q2

REPORT INFORMATION
  Report Type: 
  Country: None (occurrence: None)
  Receive Date: 20100407
  Receipt Date: 20100331
  Transmission Date: 20101027
  Serious: Yes (Hospitalization)
  Sender: FDA-Public Use
  Company Number: B0626062A

PATIENT
  Sex: Female

DRUGS (5)
  1. AUGMENTIN '125' [Suspect]
     Indication: PROPHYLAXIS
     Dosage: 2G PER DAY
     Route: 042
     Dates: start: 20100109, end: 20100109
  2. AMOXICILLIN SODIUM [Suspect]
     Indication: PROPHYLAXIS
     Dosage: 10G PER DAY
     Route: 042
     Dates: start: 20100109, end: 20100109
  3. LEVOTHYROX [Concomitant]
     Indication: HYPOTHYROIDISM
     Route: 065
  4. OXYGEN [Concomitant]
     Indication: DRUG USE FOR UNKNOWN INDICATION
     Dosage: 2L PER DAY
     Dates: start: 20100111
  5. LOVENOX [Concomitant]
     Indication: DRUG USE FOR UNKNOWN INDICATION
     Route: 065

REACTIONS (10)
  - BLOOD CREATININE INCREASED [None]
  - CRYSTALLURIA [None]
  - HAEMATURIA [None]
  - INCORRECT DRUG ADMINISTRATION DURATION [None]
  - LEUKOCYTURIA [None]
  - OLIGURIA [None]
  - OVERDOSE [None]
  - PROTEINURIA [None]
  - RENAL FAILURE ACUTE [None]
  - TUBULOINTERSTITIAL NEPHRITIS [None]
